FAERS Safety Report 18206444 (Version 4)
Quarter: 2020Q3

REPORT INFORMATION
  Report Type: Spontaneous
  Country: FI (occurrence: FI)
  Receive Date: 20200828
  Receipt Date: 20200923
  Transmission Date: 20201103
  Serious: Yes (Death, Other)
  Sender: FDA-Public Use
  Company Number: FI-ROCHE-2665112

PATIENT
  Age: 51 Year
  Sex: Male

DRUGS (15)
  1. TECENTRIQ [Suspect]
     Active Substance: ATEZOLIZUMAB
     Dosage: CYCLE FOUR
     Route: 042
     Dates: start: 20200227, end: 20200227
  2. CARBOPLATIN. [Suspect]
     Active Substance: CARBOPLATIN
     Dosage: 2ND CYCLE
     Route: 042
     Dates: start: 20191230, end: 20200103
  3. LONQUEX [Concomitant]
     Active Substance: LIPEGFILGRASTIM
     Dates: start: 20200130
  4. TECENTRIQ [Suspect]
     Active Substance: ATEZOLIZUMAB
     Dosage: CYCLE TWO? MAINTENENCE THERAPY
     Route: 042
     Dates: start: 20200409, end: 20200409
  5. CARBOPLATIN. [Suspect]
     Active Substance: CARBOPLATIN
     Dosage: 4TH CYCLE
     Route: 042
     Dates: start: 20200227, end: 20200302
  6. TECENTRIQ [Suspect]
     Active Substance: ATEZOLIZUMAB
     Indication: SMALL CELL LUNG CANCER
     Dosage: CYCLE ONE
     Route: 042
     Dates: start: 20191205, end: 20191205
  7. TECENTRIQ [Suspect]
     Active Substance: ATEZOLIZUMAB
     Dosage: CYCLE TWO
     Route: 042
     Dates: start: 20191230, end: 20191230
  8. TECENTRIQ [Suspect]
     Active Substance: ATEZOLIZUMAB
     Dosage: CYCLE ONE? MAINTENENCE THERAPY
     Route: 042
     Dates: start: 20200319, end: 20200319
  9. VEPESID [Suspect]
     Active Substance: ETOPOSIDE
     Dosage: 2ND CYCLE
     Route: 048
     Dates: start: 20191230, end: 20200103
  10. VEPESID [Suspect]
     Active Substance: ETOPOSIDE
     Indication: SMALL CELL LUNG CANCER
     Dosage: TWO 50 MG TABLETS
     Route: 048
     Dates: start: 20191205, end: 20191209
  11. VEPESID [Suspect]
     Active Substance: ETOPOSIDE
     Dosage: 3RD CYCLE?2 + 1 TABLETS A DAY
     Route: 048
     Dates: start: 20200130, end: 20200203
  12. CARBOPLATIN. [Suspect]
     Active Substance: CARBOPLATIN
     Indication: SMALL CELL LUNG CANCER
     Dosage: 1ST CYCLE
     Route: 042
     Dates: start: 20191205, end: 20191209
  13. CARBOPLATIN. [Suspect]
     Active Substance: CARBOPLATIN
     Dosage: 3RD CYCLE
     Route: 042
     Dates: start: 20200130, end: 20200130
  14. TECENTRIQ [Suspect]
     Active Substance: ATEZOLIZUMAB
     Dosage: CYCLE THREE
     Route: 042
     Dates: start: 20200130, end: 20200130
  15. TECENTRIQ [Suspect]
     Active Substance: ATEZOLIZUMAB
     Dosage: CYCLE THREE ? MAINTENENCE THERAPY
     Route: 042
     Dates: start: 20200430, end: 20200430

REACTIONS (7)
  - Anaemia [Recovered/Resolved]
  - Metastases to central nervous system [Fatal]
  - Disorientation [Unknown]
  - Musculoskeletal stiffness [Unknown]
  - Neutropenia [Recovered/Resolved]
  - Thrombocytopenia [Recovered/Resolved]
  - Loss of consciousness [Unknown]

NARRATIVE: CASE EVENT DATE: 20200121
